FAERS Safety Report 10121348 (Version 6)
Quarter: 2014Q4

REPORT INFORMATION
  Report Type: Spontaneous
  Country: US (occurrence: US)
  Receive Date: 20140425
  Receipt Date: 20141114
  Transmission Date: 20150528
  Serious: Yes (Hospitalization, Disabling, Other)
  Sender: FDA-Public Use
  Company Number: US-009507513-1404USA011048

PATIENT
  Sex: Female
  Weight: 85.71 kg

DRUGS (4)
  1. ALENDRONATE SODIUM. [Suspect]
     Active Substance: ALENDRONATE SODIUM
     Indication: OSTEOPENIA
     Dosage: 70 MG, UNK
     Route: 048
     Dates: start: 20080829, end: 2012
  2. FOSAMAX [Suspect]
     Active Substance: ALENDRONATE SODIUM
     Indication: OSTEOPENIA
     Dosage: 70 MG, UNK
     Route: 048
     Dates: start: 1999, end: 2008
  3. VITAMINS (UNSPECIFIED) [Concomitant]
     Active Substance: VITAMINS
     Dosage: UNK DF, QD
     Dates: start: 1983
  4. CALCIUM (UNSPECIFIED) [Concomitant]
     Active Substance: CALCIUM
     Dosage: UNK DF, QD
     Dates: start: 1983

REACTIONS (20)
  - Intramedullary rod insertion [Recovered/Resolved]
  - Tonsillectomy [Unknown]
  - Thrombectomy [Unknown]
  - Anxiety [Unknown]
  - Intramedullary rod insertion [Recovered/Resolved]
  - Hyperlipidaemia [Unknown]
  - Femur fracture [Not Recovered/Not Resolved]
  - Carotid artery stenosis [Unknown]
  - Stress fracture [Not Recovered/Not Resolved]
  - Osteoporosis [Not Recovered/Not Resolved]
  - Endodontic procedure [Unknown]
  - Hypertension [Unknown]
  - Femur fracture [Recovered/Resolved]
  - Osteoporosis [Unknown]
  - Compulsive hoarding [Unknown]
  - Low turnover osteopathy [Not Recovered/Not Resolved]
  - Endodontic procedure [Unknown]
  - Aortic arteriosclerosis [Unknown]
  - Vitamin D deficiency [Unknown]
  - Depression [Unknown]

NARRATIVE: CASE EVENT DATE: 2001
